FAERS Safety Report 16073449 (Version 3)
Quarter: 2019Q2

REPORT INFORMATION
  Report Type: Spontaneous
  Country: ES (occurrence: ES)
  Receive Date: 20190314
  Receipt Date: 20190528
  Transmission Date: 20190711
  Serious: Yes (Hospitalization)
  Sender: FDA-Public Use
  Company Number: ES-MYLANLABS-2019M1023331

PATIENT
  Age: 59 Year
  Sex: Female
  Weight: 54 kg

DRUGS (15)
  1. PALBOCICLIB [Suspect]
     Active Substance: PALBOCICLIB
     Indication: BREAST CANCER METASTATIC
     Dosage: 75 MILLIGRAM, CYCLE
     Dates: start: 20160824
  2. TERCIAN                            /00759301/ [Concomitant]
     Active Substance: CYAMEMAZINE
     Dosage: 30 GTT, 1X/DAY
     Route: 048
     Dates: start: 2010
  3. LEXOMIL [Concomitant]
     Active Substance: BROMAZEPAM
     Dosage: 6 MILLIGRAM, BID
     Route: 048
     Dates: start: 2010
  4. CEFAZOLINE                         /00288501/ [Concomitant]
     Active Substance: CEFAZOLIN
     Dosage: 2 GRAM, QD
     Route: 042
     Dates: start: 20161212
  5. SOLU-MEDROL [Concomitant]
     Active Substance: METHYLPREDNISOLONE SODIUM SUCCINATE
     Dosage: 120 MG, 1X/DAY
     Route: 048
     Dates: start: 20161212
  6. NEO-SYNEPHRINE [Concomitant]
     Active Substance: PHENYLEPHRINE HYDROCHLORIDE
     Dosage: 50 UG/ML, 1X/DAY
     Route: 042
     Dates: start: 20161212
  7. PROZAC [Concomitant]
     Active Substance: FLUOXETINE HYDROCHLORIDE
     Dosage: 20 MG, 1X/DAY
     Route: 048
     Dates: start: 2010
  8. SKENAN [Concomitant]
     Active Substance: MORPHINE SULFATE
     Indication: PROPHYLAXIS
     Dosage: 80 MG, 2X/DAY
     Route: 048
     Dates: start: 20161103
  9. ACTISKENAN [Concomitant]
     Active Substance: MORPHINE SULFATE
     Indication: PROPHYLAXIS
     Dosage: 10 MG, AS NEEDED (ON DEMAND)
     Route: 048
     Dates: start: 20161114
  10. VENLAFAXINE [Suspect]
     Active Substance: VENLAFAXINE HYDROCHLORIDE
     Indication: BREAST CANCER METASTATIC
     Dosage: UNK
  11. LETROZOLE. [Suspect]
     Active Substance: LETROZOLE
     Indication: BREAST CANCER METASTATIC
     Dosage: 2.5 MILLIGRAM, QD
     Dates: start: 20160824
  12. THERALENE [Concomitant]
     Active Substance: TRIMEPRAZINE
     Dosage: 80 GTT, 1X/DAY
     Route: 048
     Dates: start: 2010
  13. KEPPRA [Concomitant]
     Active Substance: LEVETIRACETAM
     Dosage: 500 MILLIGRAM, BID
     Route: 048
     Dates: start: 20161017
  14. EFFEXOR [Concomitant]
     Active Substance: VENLAFAXINE HYDROCHLORIDE
     Dosage: 75 MG, 1X/DAY
     Route: 048
     Dates: start: 2016
  15. MOGADON [Concomitant]
     Active Substance: NITRAZEPAM
     Dosage: 5 MG, 1X/DAY
     Route: 048
     Dates: start: 2010

REACTIONS (2)
  - Hyponatraemia [Recovered/Resolved]
  - Inappropriate antidiuretic hormone secretion [Recovered/Resolved]

NARRATIVE: CASE EVENT DATE: 20180720
